FAERS Safety Report 6478923-1 (Version None)
Quarter: 2009Q4

REPORT INFORMATION
  Report Type: 
  Country: None (occurrence: None)
  Receive Date: 20091207
  Receipt Date: 20091130
  Transmission Date: 20100525
  Serious: Yes (Hospitalization)
  Sender: FDA-Public Use
  Company Number: US-ELI_LILLY_AND_COMPANY-US200910006900

PATIENT
  Sex: Female

DRUGS (11)
  1. FORTEO [Suspect]
     Dates: start: 20081101
  2. FENTANYL [Concomitant]
     Indication: PAIN
     Dosage: 25 UG, OTHER
  3. CALCIUM WITH VITAMIN D /00944201/ [Concomitant]
     Dosage: 600 MG, 2/D
  4. AMBIEN [Concomitant]
     Dosage: 10 MG, EACH EVENING
  5. THERAPEUTIC MULTIVITAMINS [Concomitant]
     Dosage: UNK, DAILY (1/D)
  6. ASCORBIC ACID [Concomitant]
     Dosage: 500 MG, 2/D
  7. VITAMIN B COMPLEX CAP [Concomitant]
     Dosage: UNK, DAILY (1/D)
  8. ARTIFICIAL TEARS /00445101/ [Concomitant]
     Dosage: UNK, 2/D
  9. FOLIC ACID [Concomitant]
     Dosage: 1 MG, DAILY (1/D)
  10. VITAMIN D3 [Concomitant]
     Dosage: 2000 IU, DAILY (1/D)
  11. LEXAPRO [Concomitant]
     Indication: DEPRESSION
     Dosage: 20 MG, EACH EVENING

REACTIONS (5)
  - ANXIETY [None]
  - LIP SWELLING [None]
  - PRURITUS [None]
  - RASH MACULAR [None]
  - URTICARIA [None]
